FAERS Safety Report 4948744-7 (Version None)
Quarter: 2006Q1

REPORT INFORMATION
  Report Type: 
  Country: None (occurrence: None)
  Receive Date: 20060317
  Receipt Date: 20060306
  Transmission Date: 20060701
  Serious: Yes (Other)
  Sender: FDA-Public Use
  Company Number: 2006033198

PATIENT
  Age: 40 Year
  Sex: Male
  Weight: 83.9154 kg

DRUGS (11)
  1. ATARAX [Suspect]
     Indication: URTICARIA CHOLINERGIC
     Dosage: (600 MG, 1 IN 4 HR)
     Dates: start: 19730101
  2. ZYRTEC-D 12 HOUR [Suspect]
     Indication: MULTIPLE ALLERGIES
     Dosage: 5MG/120 MG (1 IN 1 D)
  3. CELEBREX [Suspect]
     Indication: ARTHRITIS
     Dosage: (200 MG, 1 IN 1 D)
  4. HYDROXYZINE [Suspect]
     Indication: URTICARIA CHOLINERGIC
  5. ALLEGRA [Suspect]
     Indication: MULTIPLE ALLERGIES
  6. CLARITIN [Suspect]
     Indication: MULTIPLE ALLERGIES
  7. SEREVENT DISKUS (SALMETEROL XINAFOATE) [Concomitant]
  8. PROTONIX [Concomitant]
  9. ALBUTEROL [Concomitant]
  10. FLOVENT [Concomitant]
  11. SINGULAIR ^MERCK^ (MONELUKAST SODIUM) [Concomitant]

REACTIONS (11)
  - BENIGN PROSTATIC HYPERPLASIA [None]
  - BRAIN NEOPLASM [None]
  - BRAIN STEM THROMBOSIS [None]
  - CEREBROVASCULAR ACCIDENT [None]
  - DENTAL NECROSIS [None]
  - DRUG INEFFECTIVE [None]
  - DRUG INTOLERANCE [None]
  - EXOSTOSIS [None]
  - HYPERSENSITIVITY [None]
  - OSTEOARTHRITIS [None]
  - TRANSIENT ISCHAEMIC ATTACK [None]
